FAERS Safety Report 8192827-8 (Version None)
Quarter: 2012Q1

REPORT INFORMATION
  Report Type: 
  Country: None (occurrence: None)
  Receive Date: 20120308
  Receipt Date: 20120308
  Transmission Date: 20120608
  Serious: No
  Sender: FDA-Public Use
  Company Number: US-PFIZER INC-2009292458

PATIENT
  Sex: Female

DRUGS (3)
  1. PREMARIN [Suspect]
     Indication: HORMONE REPLACEMENT THERAPY
     Dosage: 0.3MG/DAY
  2. ZOCOR [Concomitant]
  3. ATENOLOL [Suspect]
     Dosage: UNK
     Route: 048
     Dates: start: 20091001

REACTIONS (1)
  - HOT FLUSH [None]
